FAERS Safety Report 16266630 (Version 4)
Quarter: 2020Q1

REPORT INFORMATION
  Report Type: Report from Study
  Country: GB (occurrence: GB)
  Receive Date: 20190502
  Receipt Date: 20200205
  Transmission Date: 20200409
  Serious: Yes (Other)
  Sender: FDA-Public Use
  Company Number: GB-JNJFOC-20190441219

PATIENT
  Sex: Male

DRUGS (2)
  1. STELARA [Suspect]
     Active Substance: USTEKINUMAB
     Route: 058
  2. STELARA [Suspect]
     Active Substance: USTEKINUMAB
     Indication: PSORIASIS
     Route: 058

REACTIONS (6)
  - Psoriasis [Unknown]
  - Non-alcoholic steatohepatitis [Not Recovered/Not Resolved]
  - Fibrosis [Unknown]
  - Lower respiratory tract infection [Not Recovered/Not Resolved]
  - Diabetes mellitus [Unknown]
  - Drug ineffective [Unknown]
